FAERS Safety Report 10191745 (Version 1)
Quarter: 2014Q2

REPORT INFORMATION
  Report Type: Spontaneous
  Country: IT (occurrence: IT)
  Receive Date: 20140523
  Receipt Date: 20140523
  Transmission Date: 20141212
  Serious: Yes (Other)
  Sender: FDA-Public Use
  Company Number: IT-BAXTER-2014BAX026580

PATIENT
  Sex: 0

DRUGS (7)
  1. ENDOXAN BAXTER [Suspect]
     Indication: PLASMA CELL MYELOMA
     Dosage: PER DAY
     Route: 065
  2. DEXAMETHASONE [Suspect]
     Indication: PLASMA CELL MYELOMA
     Route: 048
  3. CISPLATIN [Suspect]
     Indication: PLASMA CELL MYELOMA
     Dosage: PER DAY
     Route: 065
  4. DOXORUBICIN [Suspect]
     Indication: PLASMA CELL MYELOMA
     Dosage: PER DAY
     Route: 065
  5. ETOPOSIDE [Suspect]
     Indication: PLASMA CELL MYELOMA
     Dosage: PER DAY
     Route: 048
  6. BORTEZOMIB [Suspect]
     Indication: PLASMA CELL MYELOMA
     Dosage: DAYS 1,4,8 AND 11
     Route: 042
  7. THALIDOMIDE [Suspect]
     Indication: PLASMA CELL MYELOMA
     Route: 048

REACTIONS (1)
  - Plasma cell myeloma [Unknown]
